FAERS Safety Report 24015708 (Version 1)
Quarter: 2024Q2

REPORT INFORMATION
  Report Type: Spontaneous
  Country: US (occurrence: None)
  Receive Date: 20240626
  Receipt Date: 20240626
  Transmission Date: 20240716
  Serious: Yes (Life-Threatening, Hospitalization, Disabling, Other)
  Sender: FDA-Public Use
  Company Number: None

PATIENT
  Age: 40 Year
  Sex: Male
  Weight: 83.91 kg

DRUGS (4)
  1. DUPIXENT [Suspect]
     Active Substance: DUPILUMAB
     Indication: Eczema
     Dosage: OTHER QUANTITY : 2 SINGLE SYRINGES?FREQUENCY :ONE SYRINGE EVERY 2 WEEK?OTHER ROUTE : INJECTION?
     Route: 050
     Dates: start: 20221115, end: 20240423
  2. FLUOCINONIDE [Concomitant]
     Active Substance: FLUOCINONIDE
  3. HYDROCORTISONE [Concomitant]
     Active Substance: HYDROCORTISONE\HYDROCORTISONE ACETATE
  4. PROPRANOLOL HCL [Concomitant]

REACTIONS (10)
  - Loss of consciousness [None]
  - Cough [None]
  - Chest pain [None]
  - Back pain [None]
  - Pneumonia [None]
  - Mediastinal mass [None]
  - Pleural effusion [None]
  - Pericardial effusion [None]
  - Precursor T-lymphoblastic lymphoma/leukaemia [None]
  - Acute lymphocytic leukaemia [None]

NARRATIVE: CASE EVENT DATE: 20240419
